FAERS Safety Report 7300979-4 (Version None)
Quarter: 2011Q1

REPORT INFORMATION
  Report Type: 
  Country: None (occurrence: None)
  Receive Date: 20110218
  Receipt Date: 20110208
  Transmission Date: 20110831
  Serious: Yes (Death, Life-Threatening, Hospitalization)
  Sender: FDA-Public Use
  Company Number: JP-GENZYME-THYM-1002301

PATIENT

DRUGS (28)
  1. VORICONAZOLE [Concomitant]
     Indication: ANTIFUNGAL PROPHYLAXIS
     Dosage: 12 DF, QD
     Dates: start: 20100518, end: 20100518
  2. METHYLPEDNISOLONE SODIUM SUCCINATE [Concomitant]
     Dosage: 500 MG, QD
     Dates: start: 20100518, end: 20100518
  3. DIAZEPAM [Concomitant]
     Indication: RESPIRATORY DISTRESS
     Dosage: 20 MG, QD
     Dates: start: 20100528, end: 20100528
  4. URSODIOL [Concomitant]
     Indication: VENOOCCLUSIVE LIVER DISEASE
     Dosage: 6 DF, QD
     Dates: start: 20100517, end: 20100528
  5. MORPHINE HYDROCHLORIDE [Concomitant]
     Indication: RESPIRATORY DISTRESS
     Dosage: 34 MG, QD
     Dates: start: 20100528, end: 20100528
  6. MAGNESIUM OXIDE [Concomitant]
     Indication: PROPHYLAXIS
     Dosage: 3 DF, QD
     Dates: start: 20100519, end: 20100526
  7. ANTIBIOTICS-RESISTANT LACTIC ACID BACTERIAE [Concomitant]
     Indication: PROPHYLAXIS
     Dosage: 3 G, QD
     Dates: start: 20100517, end: 20100528
  8. ACICLOVIR [Concomitant]
     Indication: ANTIVIRAL PROPHYLAXIS
     Dosage: 5 DF, UNK
     Dates: start: 20100517, end: 20100528
  9. FLUNITRAZEPAM [Concomitant]
     Indication: INSOMNIA
     Dosage: 1 DF, QD
     Dates: start: 20100517, end: 20100528
  10. GRANISETRON HYDROCHLORIDE [Concomitant]
     Indication: ANTIEMETIC SUPPORTIVE CARE
     Dosage: 3 MG, QD
     Dates: start: 20100528, end: 20100528
  11. TACROLIMUS [Concomitant]
     Indication: PROPHYLAXIS AGAINST GRAFT VERSUS HOST DISEASE
     Dosage: 1.13 MG, QD
     Dates: start: 20100517, end: 20100519
  12. FILGRASTIM [Concomitant]
     Dosage: 150 MCG, QD
     Dates: start: 20100524, end: 20100524
  13. FOSCARNET SODIUM [Concomitant]
     Indication: ANTIVIRAL PROPHYLAXIS
     Dosage: 3 G, QD
     Dates: start: 20100525, end: 20100528
  14. IRSOGLADINE MALEATE [Concomitant]
     Indication: PROPHYLAXIS AGAINST GASTROINTESTINAL ULCER
     Dosage: 2 DF, QD
     Dates: start: 20100517, end: 20100528
  15. VORICONAZOLE [Concomitant]
     Dosage: 6 DF, QD
     Dates: start: 20100519, end: 20100528
  16. MAGNESIUM OXIDE [Concomitant]
     Dosage: 3 DF, QD
     Dates: start: 20100528, end: 20100528
  17. TACROLIMUS [Concomitant]
     Dosage: 1.35 MG, QD
     Dates: start: 20100520, end: 20100521
  18. LANSOPRAZOLE [Concomitant]
     Indication: PROPHYLAXIS AGAINST GASTROINTESTINAL ULCER
     Dosage: 1 DF, QD
     Dates: start: 20100517, end: 20100528
  19. MITOXANTRONE HYDROCHLORIDE [Concomitant]
     Indication: ACUTE MYELOID LEUKAEMIA
     Dosage: 6 MG, QD
     Dates: start: 20100528, end: 20100528
  20. TACROLIMUS [Concomitant]
     Dosage: 1.5 MG, QD
     Dates: start: 20100522, end: 20100525
  21. FILGRASTIM [Concomitant]
     Indication: COLONY STIMULATING FACTOR THERAPY
     Dosage: 350 MCG, QD
     Dates: start: 20100524, end: 20100524
  22. PHENYTOIN [Concomitant]
     Indication: CONVULSION PROPHYLAXIS
     Dosage: 3 DF, QD
     Dates: start: 20100517, end: 20100517
  23. LEVOFLOXACIN [Concomitant]
     Indication: ANTIBIOTIC PROPHYLAXIS
     Dosage: 2 DF, QD
     Dates: start: 20100517, end: 20100528
  24. METHYLPEDNISOLONE SODIUM SUCCINATE [Concomitant]
     Indication: PREMEDICATION
     Dosage: 125 MG, QD
     Dates: start: 20100517, end: 20100518
  25. MIDAZOLAM [Concomitant]
     Indication: RESPIRATORY DISTRESS
     Dosage: 40 MG, QD
     Dates: start: 20100528, end: 20100528
  26. THYMOGLOBULIN [Suspect]
     Indication: BONE MARROW CONDITIONING REGIMEN
     Dosage: 56 MG, QD
     Route: 042
     Dates: start: 20100517, end: 20100518
  27. METHYLPEDNISOLONE SODIUM SUCCINATE [Concomitant]
     Indication: PROPHYLAXIS AGAINST GRAFT VERSUS HOST DISEASE
     Dosage: 60 MG, QD
     Dates: start: 20100519, end: 20100528
  28. TACROLIMUS [Concomitant]
     Dosage: 1.2 MG, QD
     Dates: start: 20100526, end: 20100526

REACTIONS (5)
  - PYREXIA [None]
  - PULMONARY HAEMORRHAGE [None]
  - DISSEMINATED INTRAVASCULAR COAGULATION [None]
  - ACUTE MYELOID LEUKAEMIA [None]
  - CARDIAC FAILURE [None]
